FAERS Safety Report 21814272 (Version 2)
Quarter: 2023Q1

REPORT INFORMATION
  Report Type: Report from Study
  Country: US (occurrence: US)
  Receive Date: 20230104
  Receipt Date: 20230110
  Transmission Date: 20230418
  Serious: Yes (Other)
  Sender: FDA-Public Use
  Company Number: US-ABBVIE-4226380

PATIENT
  Age: 58 Year
  Sex: Female

DRUGS (2)
  1. HUMIRA [Suspect]
     Active Substance: ADALIMUMAB
     Indication: Colitis ulcerative
     Dosage: CITRATE FREE
     Route: 058
  2. HUMIRA [Suspect]
     Active Substance: ADALIMUMAB
     Indication: Ankylosing spondylitis

REACTIONS (8)
  - Respiratory disorder [Not Recovered/Not Resolved]
  - Headache [Recovered/Resolved]
  - Blister [Not Recovered/Not Resolved]
  - Food poisoning [Recovered/Resolved]
  - COVID-19 [Recovering/Resolving]
  - Skin discolouration [Not Recovered/Not Resolved]
  - Inflammation [Not Recovered/Not Resolved]
  - Diaphragmatic disorder [Not Recovered/Not Resolved]

NARRATIVE: CASE EVENT DATE: 20221111
